FAERS Safety Report 20801162 (Version 1)
Quarter: 2022Q2

REPORT INFORMATION
  Report Type: Spontaneous
  Country: US (occurrence: US)
  Receive Date: 20220509
  Receipt Date: 20220509
  Transmission Date: 20220721
  Serious: No
  Sender: FDA-Public Use
  Company Number: US-BRISTOL-MYERS SQUIBB COMPANY-2022-035541

PATIENT
  Age: 81 Year
  Sex: Female

DRUGS (1)
  1. REVLIMID [Suspect]
     Active Substance: LENALIDOMIDE
     Indication: Lung disorder
     Dosage: TAKE 1 CAPSULE BY MOUTH EVERY OTHER DAY
     Dates: start: 20180110

REACTIONS (2)
  - Medication error [Unknown]
  - Intentional product use issue [Unknown]
